FAERS Safety Report 9528893 (Version 2)
Quarter: 2013Q3

REPORT INFORMATION
  Report Type: Spontaneous
  Country: US (occurrence: US)
  Receive Date: 20130917
  Receipt Date: 20130917
  Transmission Date: 20140515
  Serious: No
  Sender: FDA-Public Use
  Company Number: US-BANPHARM-20130924

PATIENT
  Sex: Female

DRUGS (1)
  1. ZYRTEC LIQUID GELS 10 MG [Suspect]
     Route: 048

REACTIONS (1)
  - Drug effect decreased [Unknown]
